FAERS Safety Report 12788162 (Version 1)
Quarter: 2016Q3

REPORT INFORMATION
  Report Type: Spontaneous
  Country: US (occurrence: US)
  Receive Date: 20160928
  Receipt Date: 20160928
  Transmission Date: 20161109
  Serious: No
  Sender: FDA-Public Use
  Company Number: US-PAR PHARMACEUTICAL, INC-2016SCPR015155

PATIENT

DRUGS (2)
  1. GLYCOPYRROLATE. [Suspect]
     Active Substance: GLYCOPYRROLATE
     Dosage: 1 DF, BID, 1 TABLET AFTER BREAKFAST AND 1 TABLET AFTER DINNER
     Route: 048
     Dates: start: 201601, end: 20160128
  2. GLYCOPYRROLATE. [Suspect]
     Active Substance: GLYCOPYRROLATE
     Indication: DYSPEPSIA
     Dosage: 1 DF, BID, 1 TABLET AFTER BREAKFAST AND 1 TABLET AFTER DINNER
     Route: 048
     Dates: start: 2015, end: 201601

REACTIONS (3)
  - Drug ineffective for unapproved indication [Unknown]
  - Product odour abnormal [Unknown]
  - Product taste abnormal [Unknown]

NARRATIVE: CASE EVENT DATE: 201601
